FAERS Safety Report 8852787 (Version 4)
Quarter: 2013Q2

REPORT INFORMATION
  Report Type: Spontaneous
  Country: US (occurrence: US)
  Receive Date: 20121022
  Receipt Date: 20130405
  Transmission Date: 20140414
  Serious: Yes (Hospitalization, Other)
  Sender: FDA-Public Use
  Company Number: US-009507513-1202USA00054

PATIENT
  Sex: Female
  Weight: 71.2 kg

DRUGS (6)
  1. FOSAMAX [Suspect]
     Indication: OSTEOPOROSIS
     Dosage: 10 MG, QD
     Route: 048
     Dates: start: 199708, end: 200110
  2. FOSAMAX [Suspect]
     Dosage: 70 UNK, QW
     Route: 048
     Dates: start: 200110, end: 200802
  3. FOSAMAX [Suspect]
     Dosage: 10 MG, QD
     Route: 048
     Dates: start: 20040426, end: 20080207
  4. FOSAMAX [Suspect]
     Indication: OSTEOPOROSIS
     Dosage: 10 MG, QD
     Route: 048
     Dates: start: 20080213, end: 201009
  5. CALCIUM (UNSPECIFIED) [Concomitant]
     Indication: OSTEOPOROSIS
     Dosage: 1200 MG, QD
     Dates: start: 1997
  6. VITAMINS (UNSPECIFIED) [Concomitant]
     Dosage: UNK
     Dates: start: 1997

REACTIONS (31)
  - Open reduction of fracture [Unknown]
  - Femur fracture [Unknown]
  - Fall [Unknown]
  - Surgery [Unknown]
  - Cataract operation [Not Recovered/Not Resolved]
  - Atrioventricular block [Unknown]
  - Haemorrhagic anaemia [Unknown]
  - Thrombophlebitis superficial [Unknown]
  - Medical device complication [Unknown]
  - Medical device removal [Unknown]
  - Medical device implantation [Unknown]
  - Femur fracture [Unknown]
  - Device component issue [Unknown]
  - Device component issue [Unknown]
  - Stress fracture [Unknown]
  - Thermal burn [Not Recovered/Not Resolved]
  - Osteopenia [Unknown]
  - Spinal osteoarthritis [Unknown]
  - Hypomagnesaemia [Recovered/Resolved]
  - Arthritis [Unknown]
  - Pneumonia [Unknown]
  - Tonsillectomy [Unknown]
  - Neoplasm skin [Unknown]
  - Hysterectomy [Unknown]
  - Appendicectomy [Unknown]
  - Laceration [Unknown]
  - Pollakiuria [Unknown]
  - Dizziness [Unknown]
  - Back pain [Not Recovered/Not Resolved]
  - Pain in extremity [Unknown]
  - Anaemia [Unknown]
